FAERS Safety Report 5907526-X (Version None)
Quarter: 2008Q4

REPORT INFORMATION
  Report Type: 
  Country: None (occurrence: None)
  Receive Date: 20081003
  Receipt Date: 20080924
  Transmission Date: 20090506
  Serious: Yes (Other)
  Sender: FDA-Public Use
  Company Number: ES-JNJFOC-20080906224

PATIENT
  Age: 22 Year
  Sex: Female

DRUGS (5)
  1. REMICADE [Suspect]
     Route: 042
  2. REMICADE [Suspect]
     Indication: COLITIS ULCERATIVE
     Route: 042
  3. IMUREL [Concomitant]
     Indication: COLITIS ULCERATIVE
  4. POLARAMINE [Concomitant]
     Indication: PREMEDICATION
  5. URBASON [Concomitant]
     Indication: PREMEDICATION

REACTIONS (6)
  - ARTHRALGIA [None]
  - ASPHYXIA [None]
  - DYSPNOEA [None]
  - HEADACHE [None]
  - LARYNGEAL DISORDER [None]
  - THROAT TIGHTNESS [None]
